APPROVED DRUG PRODUCT: NOXAFIL POWDERMIX KIT
Active Ingredient: POSACONAZOLE
Strength: 300MG
Dosage Form/Route: FOR SUSPENSION, DELAYED RELEASE;ORAL
Application: N214770 | Product #001
Applicant: MERCK SHARP AND DOHME CORP A SUB OF MERCK AND CO INC
Approved: May 31, 2021 | RLD: Yes | RS: Yes | Type: RX